FAERS Safety Report 10440276 (Version 2)
Quarter: 2014Q4

REPORT INFORMATION
  Report Type: Spontaneous
  Country: IT (occurrence: None)
  Receive Date: 20140905
  Receipt Date: 20141008
  Transmission Date: 20150528
  Serious: Yes (Death, Life-Threatening)
  Sender: FDA-Public Use
  Company Number: FK201403518

PATIENT
  Age: 55 Year
  Sex: Female
  Weight: 100 kg

DRUGS (3)
  1. ROCURONIUM BROMIDE. [Suspect]
     Active Substance: ROCURONIUM BROMIDE
     Indication: INDUCTION OF ANAESTHESIA
     Route: 040
     Dates: start: 20140708, end: 20140708
  2. DIPRIVAN (PROPFOL) [Concomitant]
  3. CEFAZOLINA TEVA (CEFAZOLIN) [Concomitant]

REACTIONS (4)
  - Circulatory collapse [None]
  - Cardiac arrest [None]
  - Pallor [None]
  - Hypoventilation [None]

NARRATIVE: CASE EVENT DATE: 20140708
